FAERS Safety Report 16452056 (Version 1)
Quarter: 2019Q2

REPORT INFORMATION
  Report Type: Spontaneous
  Country: US (occurrence: US)
  Receive Date: 20190619
  Receipt Date: 20190619
  Transmission Date: 20190711
  Serious: No
  Sender: FDA-Public Use
  Company Number: US-ROCHE-2187491

PATIENT
  Age: 63 Year
  Sex: Female
  Weight: 77.18 kg

DRUGS (10)
  1. TETRACYCLINE [Concomitant]
     Active Substance: TETRACYCLINE
     Indication: HELICOBACTER INFECTION
     Dosage: STOPPED ON DAY 10 ;ONGOING: NO
     Route: 065
  2. FLAGYL [Concomitant]
     Active Substance: METRONIDAZOLE\METRONIDAZOLE HYDROCHLORIDE
     Dosage: ONGOING: UNKNOWN
     Route: 065
  3. OMEPRAZOLE. [Concomitant]
     Active Substance: OMEPRAZOLE
     Route: 065
  4. ACTEMRA [Suspect]
     Active Substance: TOCILIZUMAB
     Dosage: UNKNOWN INCREASED DOSE DUE TO WEIGHT INCREASE
     Route: 065
     Dates: start: 20180814, end: 20180814
  5. ACTEMRA [Suspect]
     Active Substance: TOCILIZUMAB
     Indication: RHEUMATOID ARTHRITIS
     Route: 065
     Dates: start: 201709
  6. TETRACYCLINE [Concomitant]
     Active Substance: TETRACYCLINE
     Dosage: ONGOING: UNKNOWN
     Route: 065
  7. PEPTO-BISMOL [Concomitant]
     Active Substance: BISMUTH SUBSALICYLATE
     Route: 065
  8. LISINOPRIL. [Concomitant]
     Active Substance: LISINOPRIL
     Indication: BLOOD PRESSURE MEASUREMENT
     Route: 065
  9. FLAGYL [Concomitant]
     Active Substance: METRONIDAZOLE\METRONIDAZOLE HYDROCHLORIDE
     Indication: HELICOBACTER INFECTION
     Dosage: STOPPED ON DAY 10 ;ONGOING: NO
     Route: 065
  10. SYNTHROID [Concomitant]
     Active Substance: LEVOTHYROXINE SODIUM
     Indication: HYPOTHYROIDISM
     Route: 065

REACTIONS (3)
  - Rash [Not Recovered/Not Resolved]
  - Erythema [Unknown]
  - Weight increased [Unknown]

NARRATIVE: CASE EVENT DATE: 20180815
